FAERS Safety Report 6754341-3 (Version None)
Quarter: 2010Q2

REPORT INFORMATION
  Report Type: 
  Country: None (occurrence: None)
  Receive Date: 20100603
  Receipt Date: 20100525
  Transmission Date: 20101027
  Serious: Yes (Hospitalization)
  Sender: FDA-Public Use
  Company Number: DE-CEPHALON-2010003024

PATIENT
  Sex: Female

DRUGS (3)
  1. TREANDA [Suspect]
     Indication: CHRONIC LYMPHOCYTIC LEUKAEMIA
     Route: 042
  2. PAROXETINE HCL [Concomitant]
  3. ENALAPRIL [Concomitant]

REACTIONS (4)
  - ERYTHEMA [None]
  - OPEN WOUND [None]
  - RASH PAPULAR [None]
  - SKIN FISSURES [None]
